FAERS Safety Report 13233233 (Version 7)
Quarter: 2017Q2

REPORT INFORMATION
  Report Type: Report from Study
  Country: US (occurrence: US)
  Receive Date: 20170215
  Receipt Date: 20170407
  Transmission Date: 20170830
  Serious: No
  Sender: FDA-Public Use
  Company Number: PHEH2017US004558

PATIENT
  Age: 31 Year
  Sex: Female
  Weight: 105.67 kg

DRUGS (1)
  1. GILENYA [Suspect]
     Active Substance: FINGOLIMOD HYDROCHLORIDE
     Indication: MULTIPLE SCLEROSIS
     Dosage: 0.5 MG, QD
     Route: 048
     Dates: start: 20170211

REACTIONS (8)
  - Hypoaesthesia [Not Recovered/Not Resolved]
  - Mental disorder [Unknown]
  - Irritability [Unknown]
  - Dizziness [Recovered/Resolved]
  - Frustration tolerance decreased [Unknown]
  - Stress [Unknown]
  - Multiple sclerosis relapse [Unknown]
  - Headache [Not Recovered/Not Resolved]

NARRATIVE: CASE EVENT DATE: 20170211
